FAERS Safety Report 17367377 (Version 1)
Quarter: 2020Q1

REPORT INFORMATION
  Report Type: Spontaneous
  Country: GB (occurrence: GB)
  Receive Date: 20200204
  Receipt Date: 20200204
  Transmission Date: 20200409
  Serious: Yes (Hospitalization, Other)
  Sender: FDA-Public Use
  Company Number: GB-PFIZER INC-2020042588

PATIENT
  Age: 66 Year
  Sex: Male

DRUGS (3)
  1. TAZOCIN [Concomitant]
     Active Substance: PIPERACILLIN SODIUM\TAZOBACTAM SODIUM
     Dosage: UNK
     Route: 042
  2. DOCETAXEL. [Suspect]
     Active Substance: DOCETAXEL
     Indication: PROSTATE CANCER
     Dosage: 140 MG, UNK
     Route: 042
     Dates: start: 20160429, end: 20160807
  3. GENTAMYCINE [Concomitant]
     Active Substance: GENTAMICIN
     Dosage: UNK
     Route: 042

REACTIONS (4)
  - Dyspnoea exertional [Recovering/Resolving]
  - Pulmonary embolism [Unknown]
  - Neutrophil count decreased [Unknown]
  - C-reactive protein increased [Recovering/Resolving]

NARRATIVE: CASE EVENT DATE: 20160528
